FAERS Safety Report 11083636 (Version 15)
Quarter: 2016Q4

REPORT INFORMATION
  Report Type: Report from Study
  Country: US (occurrence: US)
  Receive Date: 20150501
  Receipt Date: 20161018
  Transmission Date: 20170206
  Serious: Yes (Other)
  Sender: FDA-Public Use
  Company Number: US-SA-2015SA010691

PATIENT
  Age: 55 Year
  Sex: Male
  Weight: 77.11 kg

DRUGS (20)
  1. AUBAGIO [Suspect]
     Active Substance: TERIFLUNOMIDE
     Indication: MULTIPLE SCLEROSIS
     Route: 048
     Dates: start: 2016, end: 2016
  2. VITAMIN D [Concomitant]
     Active Substance: CHOLECALCIFEROL
  3. AUBAGIO [Suspect]
     Active Substance: TERIFLUNOMIDE
     Indication: MULTIPLE SCLEROSIS
     Route: 048
     Dates: start: 2016, end: 2016
  4. GABAPENTIN. [Concomitant]
     Active Substance: GABAPENTIN
     Indication: PAIN
     Dates: start: 2011
  5. TRAZODONE [Concomitant]
     Active Substance: TRAZODONE HYDROCHLORIDE
     Route: 048
     Dates: start: 2014
  6. PROZAC [Concomitant]
     Active Substance: FLUOXETINE HYDROCHLORIDE
     Dates: start: 1986
  7. OLANZAPINE. [Concomitant]
     Active Substance: OLANZAPINE
  8. CYMBALTA [Concomitant]
     Active Substance: DULOXETINE HYDROCHLORIDE
     Route: 048
  9. AUBAGIO [Suspect]
     Active Substance: TERIFLUNOMIDE
     Indication: MULTIPLE SCLEROSIS
     Route: 048
     Dates: start: 20150110, end: 20150423
  10. AUBAGIO [Suspect]
     Active Substance: TERIFLUNOMIDE
     Indication: MULTIPLE SCLEROSIS
     Route: 048
     Dates: start: 2015, end: 20160202
  11. AUBAGIO [Suspect]
     Active Substance: TERIFLUNOMIDE
     Indication: MULTIPLE SCLEROSIS
     Route: 048
     Dates: start: 2015, end: 20160202
  12. TRAZODONE [Concomitant]
     Active Substance: TRAZODONE HYDROCHLORIDE
     Route: 048
  13. CYMBALTA [Concomitant]
     Active Substance: DULOXETINE HYDROCHLORIDE
     Route: 048
  14. AUBAGIO [Suspect]
     Active Substance: TERIFLUNOMIDE
     Indication: MULTIPLE SCLEROSIS
     Route: 048
     Dates: start: 2016, end: 2016
  15. TRAMADOL. [Concomitant]
     Active Substance: TRAMADOL
     Indication: PAIN
     Dates: start: 2015
  16. OLANZAPINE. [Concomitant]
     Active Substance: OLANZAPINE
     Route: 048
  17. SERTRALINE [Concomitant]
     Active Substance: SERTRALINE HYDROCHLORIDE
  18. AUBAGIO [Suspect]
     Active Substance: TERIFLUNOMIDE
     Indication: MULTIPLE SCLEROSIS
     Route: 048
     Dates: start: 20150110, end: 20150423
  19. AUBAGIO [Suspect]
     Active Substance: TERIFLUNOMIDE
     Indication: MULTIPLE SCLEROSIS
     Route: 048
     Dates: start: 2015, end: 20160202
  20. SERTRALINE [Concomitant]
     Active Substance: SERTRALINE HYDROCHLORIDE
     Route: 048

REACTIONS (36)
  - Bedridden [Unknown]
  - Immunodeficiency [Unknown]
  - Diverticulitis [Unknown]
  - Pneumonia [Recovered/Resolved]
  - Stress [Not Recovered/Not Resolved]
  - Spinal pain [Recovered/Resolved]
  - Malaise [Unknown]
  - Weight decreased [Unknown]
  - Psychotic disorder [Recovered/Resolved]
  - Muscular weakness [Recovered/Resolved]
  - Cough [Unknown]
  - Bronchitis [Recovered/Resolved]
  - Pain in extremity [Recovering/Resolving]
  - Neuropathy peripheral [Unknown]
  - Blindness transient [Recovered/Resolved]
  - Memory impairment [Not Recovered/Not Resolved]
  - Asthenia [Unknown]
  - Walking aid user [Unknown]
  - Somnolence [Unknown]
  - Asthenia [Not Recovered/Not Resolved]
  - Asthenia [Unknown]
  - Hypoaesthesia [Recovered/Resolved]
  - Pain in extremity [Recovered/Resolved]
  - Fatigue [Unknown]
  - Vomiting [Recovered/Resolved]
  - Alopecia [Recovered/Resolved]
  - Unevaluable event [Unknown]
  - Condition aggravated [Unknown]
  - Intentional self-injury [Recovered/Resolved]
  - Stomatitis [Unknown]
  - Influenza [Recovered/Resolved]
  - Multiple sclerosis relapse [Unknown]
  - Abasia [Recovered/Resolved]
  - Multiple sclerosis relapse [Recovered/Resolved]
  - Cognitive disorder [Not Recovered/Not Resolved]
  - Pain [Not Recovered/Not Resolved]

NARRATIVE: CASE EVENT DATE: 2015
